FAERS Safety Report 8997186 (Version 1)
Quarter: 2013Q1

REPORT INFORMATION
  Report Type: Spontaneous
  Country: US (occurrence: None)
  Receive Date: 20130102
  Receipt Date: 20130102
  Transmission Date: 20140127
  Serious: Yes (Hospitalization)
  Sender: FDA-Public Use
  Company Number: None

PATIENT
  Age: 84 Year
  Sex: Male
  Weight: 87.8 kg

DRUGS (1)
  1. DABIGATRAN [Suspect]
     Indication: ATRIAL FIBRILLATION
     Route: 048
     Dates: end: 20110902

REACTIONS (3)
  - Occult blood positive [None]
  - Gastric haemorrhage [None]
  - Haematochezia [None]
